FAERS Safety Report 8877479 (Version 1)
Quarter: 2012Q4

REPORT INFORMATION
  Report Type: Spontaneous
  Country: US (occurrence: None)
  Receive Date: 20121026
  Receipt Date: 20121026
  Transmission Date: 20130627
  Serious: Yes (Life-Threatening, Hospitalization, Disabling, Other)
  Sender: FDA-Public Use
  Company Number: None

PATIENT
  Age: 84 Year
  Sex: Female
  Weight: 90.72 kg

DRUGS (2)
  1. REUMOFAN [Suspect]
     Indication: PAIN IN HIP
     Dosage: 1 pill  twice a day
     Dates: start: 20120107, end: 20121001
  2. REUMOFAN [Suspect]
     Indication: HAND PAIN
     Dosage: 1 pill  twice a day
     Dates: start: 20120107, end: 20121001

REACTIONS (13)
  - Dyspnoea [None]
  - Oedema peripheral [None]
  - Abasia [None]
  - Skin disorder [None]
  - Dizziness [None]
  - Movement disorder [None]
  - Decreased appetite [None]
  - Myalgia [None]
  - Fatigue [None]
  - Blood pressure fluctuation [None]
  - Anaemia [None]
  - Arthritis [None]
  - Immune system disorder [None]
